FAERS Safety Report 11846807 (Version 1)
Quarter: 2015Q4

REPORT INFORMATION
  Report Type: Report from Study
  Country: US (occurrence: US)
  Receive Date: 20151217
  Receipt Date: 20151217
  Transmission Date: 20160305
  Serious: Yes (Death, Hospitalization, Other)
  Sender: FDA-Public Use
  Company Number: US-BAYER-2015-355344

PATIENT
  Age: 60 Year
  Sex: Female
  Weight: 122.45 kg

DRUGS (8)
  1. MORPHINE [Suspect]
     Active Substance: MORPHINE
  2. ADEMPAS [Suspect]
     Active Substance: RIOCIGUAT
     Indication: PULMONARY ARTERIAL HYPERTENSION
     Dosage: 1 MG, TID
     Route: 048
     Dates: start: 20150602, end: 201506
  3. ADEMPAS [Suspect]
     Active Substance: RIOCIGUAT
     Indication: PULMONARY ARTERIAL HYPERTENSION
     Dosage: 2.5 MG, TID (LAST SHIPPED 09-OCT-2015)
     Route: 048
  4. ADEMPAS [Suspect]
     Active Substance: RIOCIGUAT
     Indication: PULMONARY ARTERIAL HYPERTENSION
     Dosage: 1 MG, TID
     Route: 048
     Dates: end: 201506
  5. ADEMPAS [Suspect]
     Active Substance: RIOCIGUAT
     Indication: PULMONARY ARTERIAL HYPERTENSION
     Dosage: 1.5 MG, TID
     Route: 048
  6. ADEMPAS [Suspect]
     Active Substance: RIOCIGUAT
     Indication: PULMONARY ARTERIAL HYPERTENSION
     Dosage: 2.5 MG, TID
     Route: 048
  7. XARELTO [Concomitant]
     Active Substance: RIVAROXABAN
  8. ADEMPAS [Suspect]
     Active Substance: RIOCIGUAT
     Indication: PULMONARY ARTERIAL HYPERTENSION
     Dosage: UNK
     Dates: start: 20150602

REACTIONS (10)
  - Blood pressure decreased [Unknown]
  - Dermatitis [Unknown]
  - Asthenia [Unknown]
  - Eczema weeping [Unknown]
  - Cellulitis [Unknown]
  - Pulmonary hypertension [Unknown]
  - Fluid overload [Unknown]
  - Hypotension [Recovering/Resolving]
  - Dyspnoea exertional [None]
  - Death [Fatal]

NARRATIVE: CASE EVENT DATE: 20150724
